FAERS Safety Report 9772492 (Version 1)
Quarter: 2013Q4

REPORT INFORMATION
  Report Type: Spontaneous
  Country: US (occurrence: None)
  Receive Date: 20131218
  Receipt Date: 20131218
  Transmission Date: 20140711
  Serious: Yes (Other)
  Sender: FDA-Public Use
  Company Number: 2013CT000069

PATIENT
  Age: 49 Year
  Sex: Female
  Weight: 80.74 kg

DRUGS (7)
  1. LOSARTAN [Concomitant]
  2. LEVOTHYROXINE [Concomitant]
  3. VITAMINS [Concomitant]
  4. KORLYM [Suspect]
     Indication: PITUITARY-DEPENDENT CUSHING^S SYNDROME
     Route: 048
     Dates: start: 201305
  5. CABERGOLINE [Concomitant]
  6. METFORMIN [Concomitant]
  7. SPIRONOLACTONE [Concomitant]

REACTIONS (2)
  - Fatigue [None]
  - Drug dose omission [None]
